FAERS Safety Report 7435323-5 (Version None)
Quarter: 2011Q2

REPORT INFORMATION
  Report Type: 
  Country: None (occurrence: None)
  Receive Date: 20110425
  Receipt Date: 20100422
  Transmission Date: 20111010
  Serious: Yes (Hospitalization)
  Sender: FDA-Public Use
  Company Number: A0856931A

PATIENT

DRUGS (3)
  1. CYMBALTA [Concomitant]
     Route: 064
  2. LAMICTAL [Suspect]
     Dosage: 400MG UNKNOWN
     Route: 064
  3. WELLBUTRIN SR [Suspect]
     Route: 064

REACTIONS (2)
  - PREMATURE BABY [None]
  - DRUG EXPOSURE DURING PREGNANCY [None]
